FAERS Safety Report 5942459-4 (Version None)
Quarter: 2008Q4

REPORT INFORMATION
  Report Type: 
  Country: None (occurrence: None)
  Receive Date: 20081105
  Receipt Date: 20081024
  Transmission Date: 20090506
  Serious: Yes (Death, Other)
  Sender: FDA-Public Use
  Company Number: US-PFIZER INC-2008083751

PATIENT
  Sex: Female
  Weight: 56.7 kg

DRUGS (10)
  1. LYRICA [Suspect]
     Indication: FIBROMYALGIA
     Route: 048
     Dates: start: 20080812, end: 20080917
  2. PROMETHAZINE [Suspect]
     Indication: VOMITING
     Route: 030
     Dates: start: 20080917
  3. DEMEROL [Suspect]
     Indication: PAIN
     Route: 030
     Dates: start: 20080917
  4. LORTAB [Concomitant]
     Indication: PAIN
     Dosage: FREQ:7.5MG/500 1 EVERY 6 HOURS WHEN NEEDED
     Route: 048
  5. MEDROL [Concomitant]
     Dates: end: 20080911
  6. MYCOLOG [Concomitant]
  7. AUGMENTIN '125' [Concomitant]
     Route: 048
     Dates: end: 20080901
  8. BACTRIM DS [Concomitant]
     Dosage: FREQ:TWO TWICE  A DAY
     Route: 048
  9. DIFLUCAN [Concomitant]
  10. ZOLOFT [Concomitant]
     Route: 048

REACTIONS (9)
  - ACUTE RESPIRATORY DISTRESS SYNDROME [None]
  - DYSPNOEA [None]
  - HEPATIC NECROSIS [None]
  - MALAISE [None]
  - MYOCARDITIS [None]
  - NASAL MUCOSAL DISORDER [None]
  - SYNCOPE [None]
  - VIRAL INFECTION [None]
  - VOMITING [None]
